FAERS Safety Report 6301298-5 (Version None)
Quarter: 2009Q3

REPORT INFORMATION
  Report Type: 
  Country: None (occurrence: None)
  Receive Date: 20090807
  Receipt Date: 20090727
  Transmission Date: 20100115
  Serious: Yes (Other)
  Sender: FDA-Public Use
  Company Number: ES-JNJFOC-20090709946

PATIENT
  Age: 44 Year
  Sex: Male

DRUGS (6)
  1. REMICADE [Suspect]
     Indication: SPONDYLOARTHROPATHY
     Route: 042
  2. REMICADE [Suspect]
     Indication: PSORIATIC ARTHROPATHY
     Route: 042
  3. GLUCOCORTICOIDS [Concomitant]
  4. METHOTREXATE [Concomitant]
  5. NSAID'S [Concomitant]
  6. OMEPRAZOLE [Concomitant]

REACTIONS (1)
  - TUBERCULOSIS [None]
